FAERS Safety Report 7277595-6 (Version None)
Quarter: 2011Q1

REPORT INFORMATION
  Report Type: 
  Country: None (occurrence: None)
  Receive Date: 20110207
  Receipt Date: 20110125
  Transmission Date: 20110831
  Serious: Yes (Hospitalization)
  Sender: FDA-Public Use
  Company Number: US-ELI_LILLY_AND_COMPANY-US201101006783

PATIENT
  Sex: Female

DRUGS (8)
  1. CENTRUM [Concomitant]
     Dosage: UNK, DAILY (1/D)
  2. STOOL SOFTENER [Concomitant]
     Dosage: UNK, DAILY (1/D)
  3. ADVAIR [Concomitant]
     Dosage: UNK, DAILY (1/D)
  4. XOPENEX [Concomitant]
     Dosage: UNK, DAILY (1/D)
  5. MEGACE [Concomitant]
     Indication: APPETITE DISORDER
     Dosage: UNK, DAILY (1/D)
  6. PROTONIX [Concomitant]
     Indication: GASTROOESOPHAGEAL REFLUX DISEASE
     Dosage: UNK, DAILY (1/D)
  7. FORTEO [Suspect]
     Indication: OSTEOPOROSIS
     Dosage: 20 UG, DAILY (1/D)
  8. SPIRIVA [Concomitant]
     Dosage: UNK, DAILY (1/D)

REACTIONS (3)
  - OEDEMA PERIPHERAL [None]
  - OESOPHAGEAL ULCER [None]
  - HAEMORRHOIDAL HAEMORRHAGE [None]
